FAERS Safety Report 20469916 (Version 1)
Quarter: 2022Q1

REPORT INFORMATION
  Report Type: Spontaneous
  Country: DK (occurrence: DK)
  Receive Date: 20220214
  Receipt Date: 20220214
  Transmission Date: 20220424
  Serious: Yes (Other)
  Sender: FDA-Public Use
  Company Number: None

PATIENT
  Age: 45 Year
  Sex: Male

DRUGS (2)
  1. SOLU-MEDROL [Suspect]
     Active Substance: METHYLPREDNISOLONE SODIUM SUCCINATE
     Indication: Colitis ulcerative
     Dosage: UNK
     Route: 042
     Dates: start: 20200616, end: 20200622
  2. PREDNISOLONE [Suspect]
     Active Substance: PREDNISOLONE
     Indication: Colitis ulcerative
     Dosage: 40 MG, 1X/DAY
     Route: 048
     Dates: start: 20200612

REACTIONS (6)
  - Chorioretinopathy [Recovered/Resolved]
  - Diabetes mellitus [Not Recovered/Not Resolved]
  - Dyschromatopsia [Recovered/Resolved]
  - Vision blurred [Recovered/Resolved]
  - Astigmatism [Recovered/Resolved]
  - Off label use [Unknown]

NARRATIVE: CASE EVENT DATE: 20200616
